FAERS Safety Report 15801513 (Version 1)
Quarter: 2019Q1

REPORT INFORMATION
  Report Type: Spontaneous
  Country: ES (occurrence: ES)
  Receive Date: 20190109
  Receipt Date: 20190109
  Transmission Date: 20190417
  Serious: Yes (Life-Threatening)
  Sender: FDA-Public Use
  Company Number: ES-MYLANLABS-2019M1000392

PATIENT
  Age: 49 Year
  Sex: Male

DRUGS (2)
  1. CASPOFUNGIN [Suspect]
     Active Substance: CASPOFUNGIN
     Indication: CANDIDA INFECTION
     Dosage: DILUTING 50MG OF CASPOFUNGIN IN 5ML OF PHYSIOLOGIC SALINE (PS) AND ADMINISTERING IT IN 30 MINUTES.
     Route: 045
  2. SODIUM CHLORIDE. [Concomitant]
     Active Substance: SODIUM CHLORIDE
     Indication: CANDIDA INFECTION
     Dosage: DILUTING 50MG OF CASPOFUNGIN IN 5ML OF PHYSIOLOGIC SALINE (PS) AND ADMINISTERING IT IN 30 MINUTES.
     Route: 045

REACTIONS (6)
  - Bradycardia [Unknown]
  - Tachypnoea [Recovering/Resolving]
  - Oxygen saturation decreased [Unknown]
  - Wrong technique in product usage process [Unknown]
  - Device failure [Unknown]
  - Hypotension [Unknown]
